FAERS Safety Report 4606107-8 (Version None)
Quarter: 2005Q1

REPORT INFORMATION
  Report Type: 
  Country: None (occurrence: None)
  Receive Date: 20050309
  Receipt Date: 20050228
  Transmission Date: 20050727
  Serious: Yes (Death, Hospitalization)
  Sender: FDA-Public Use
  Company Number: 2005-02-0223

PATIENT
  Age: 55 Year
  Sex: Female
  Weight: 57.1532 kg

DRUGS (3)
  1. PEG-INTRON [Suspect]
     Indication: HEPATITIS C
     Dosage: 80 MCG QWK SUBCUTANEOUS
     Route: 058
     Dates: start: 20030811, end: 20041230
  2. REBETOL [Suspect]
     Indication: HEPATITIS C
     Dosage: 800; 400 QD ORAL
     Route: 048
     Dates: start: 20030811, end: 20040921
  3. REBETOL [Suspect]
     Indication: HEPATITIS C
     Dosage: 800; 400 QD ORAL
     Route: 048
     Dates: start: 20041119, end: 20041230

REACTIONS (2)
  - ANAEMIA [None]
  - PNEUMONIA [None]
